FAERS Safety Report 16690592 (Version 1)
Quarter: 2019Q3

REPORT INFORMATION
  Report Type: Spontaneous
  Country: CA (occurrence: CA)
  Receive Date: 20190810
  Receipt Date: 20190810
  Transmission Date: 20191004
  Serious: Yes (Other)
  Sender: FDA-Public Use
  Company Number: CA-SAMSUNG BIOEPIS-SB-2019-21427

PATIENT
  Age: 49 Year
  Sex: Male
  Weight: 73 kg

DRUGS (2)
  1. INFLIXIMAB [Suspect]
     Active Substance: INFLIXIMAB
     Indication: COLITIS ULCERATIVE
     Route: 042
  2. ASACOL [Concomitant]
     Active Substance: MESALAMINE
     Indication: PRODUCT USED FOR UNKNOWN INDICATION
     Route: 065

REACTIONS (7)
  - Haematochezia [Recovered/Resolved]
  - Drug level below therapeutic [Recovered/Resolved]
  - Herpes zoster [Recovered/Resolved]
  - Blood pressure fluctuation [Recovered/Resolved]
  - Frequent bowel movements [Recovered/Resolved]
  - Drug ineffective [Recovered/Resolved]
  - Product use issue [Recovered/Resolved]
